FAERS Safety Report 23226100 (Version 2)
Quarter: 2023Q4

REPORT INFORMATION
  Report Type: Spontaneous
  Country: JP (occurrence: JP)
  Receive Date: 20231124
  Receipt Date: 20231218
  Transmission Date: 20240110
  Serious: Yes (Other)
  Sender: FDA-Public Use
  Company Number: JP-BEH-2023165520

PATIENT
  Age: 3 Month
  Sex: Female
  Weight: 4.06 kg

DRUGS (6)
  1. HUMAN IMMUNOGLOBULIN G [Suspect]
     Active Substance: HUMAN IMMUNOGLOBULIN G
     Indication: Kawasaki^s disease
     Dosage: LOT 1
     Route: 042
  2. HUMAN IMMUNOGLOBULIN G [Suspect]
     Active Substance: HUMAN IMMUNOGLOBULIN G
     Dosage: LOT 2
     Route: 042
  3. HUMAN IMMUNOGLOBULIN G [Suspect]
     Active Substance: HUMAN IMMUNOGLOBULIN G
     Dosage: LOT 3
     Route: 042
  4. HUMAN IMMUNOGLOBULIN G [Suspect]
     Active Substance: HUMAN IMMUNOGLOBULIN G
     Dosage: 2000 MILLIGRAM/KILOGRAM
     Route: 042
  5. CEFOTAXIME [Concomitant]
     Active Substance: CEFOTAXIME SODIUM
  6. ASPIRIN SODIUM [Concomitant]
     Active Substance: ASPIRIN SODIUM

REACTIONS (7)
  - Haemolytic anaemia [Unknown]
  - Normochromic normocytic anaemia [Unknown]
  - Anti A antibody positive [Unknown]
  - Coombs direct test positive [Unknown]
  - Coombs indirect test negative [Unknown]
  - No adverse event [Unknown]
  - Off label use [Unknown]
